FAERS Safety Report 6053413-9 (Version None)
Quarter: 2009Q1

REPORT INFORMATION
  Report Type: 
  Country: None (occurrence: None)
  Receive Date: 20090127
  Receipt Date: 20080314
  Transmission Date: 20090719
  Serious: No
  Sender: FDA-Public Use
  Company Number: US-TEVA-168858USA

PATIENT
  Sex: Female

DRUGS (6)
  1. COPAXONE [Suspect]
     Indication: MULTIPLE SCLEROSIS
     Route: 058
     Dates: start: 20070301
  2. IBANDRONATE SODIUM [Concomitant]
  3. BACLOFEN [Concomitant]
  4. LEVOTHYROXINE SODIUM [Concomitant]
  5. CALCIUM [Concomitant]
  6. MOMETASONE FUROATE [Concomitant]

REACTIONS (1)
  - RASH GENERALISED [None]
